FAERS Safety Report 16163387 (Version 4)
Quarter: 2019Q3

REPORT INFORMATION
  Report Type: Report from Study
  Country: JP (occurrence: JP)
  Receive Date: 20190405
  Receipt Date: 20190829
  Transmission Date: 20191004
  Serious: Yes (Hospitalization)
  Sender: FDA-Public Use
  Company Number: JP-EISAI MEDICAL RESEARCH-EC-2019-054435

PATIENT
  Age: 37 Year
  Sex: Female

DRUGS (13)
  1. ROHYPNOL [Concomitant]
     Active Substance: FLUNITRAZEPAM
  2. SENNOSIDE [Concomitant]
     Active Substance: SENNOSIDES
  3. FYCOMPA [Suspect]
     Active Substance: PERAMPANEL
     Route: 048
     Dates: start: 20170830, end: 20170928
  4. FYCOMPA [Suspect]
     Active Substance: PERAMPANEL
     Route: 048
     Dates: start: 20180105
  5. FYCOMPA [Suspect]
     Active Substance: PERAMPANEL
     Dosage: OVERDOSE (DOSE AND FREQUENCY UNKNOWN)
     Route: 048
     Dates: start: 20170929, end: 20170930
  6. TOPINA [Suspect]
     Active Substance: TOPIRAMATE
     Indication: EPILEPSY
     Route: 048
  7. FYCOMPA [Suspect]
     Active Substance: PERAMPANEL
     Indication: EPILEPSY
     Route: 048
     Dates: start: 20170802, end: 20170829
  8. FYCOMPA [Suspect]
     Active Substance: PERAMPANEL
     Route: 048
     Dates: start: 20171018, end: 20180104
  9. FYCOMPA [Suspect]
     Active Substance: PERAMPANEL
     Route: 048
     Dates: start: 20171001, end: 20171017
  10. CERCINE [Concomitant]
     Active Substance: DIAZEPAM
  11. ROZEREM [Concomitant]
     Active Substance: RAMELTEON
  12. DEPAKENE-R [Concomitant]
     Active Substance: VALPROATE SODIUM
  13. LENDORMIN [Concomitant]
     Active Substance: BROTIZOLAM

REACTIONS (3)
  - Eating disorder [Recovered/Resolved]
  - Intentional overdose [Recovered/Resolved]
  - Altered state of consciousness [Recovered/Resolved]

NARRATIVE: CASE EVENT DATE: 20170929
